FAERS Safety Report 8985661 (Version 1)
Quarter: 2012Q4

REPORT INFORMATION
  Report Type: 
  Country: US (occurrence: US)
  Receive Date: 20121226
  Receipt Date: 20121226
  Transmission Date: 20130627
  Serious: No
  Sender: FDA-Public Use
  Company Number: US-PFIZER INC-2012322070

PATIENT
  Age: 71 Year
  Sex: Female
  Weight: 66 kg

DRUGS (3)
  1. ESTRING [Suspect]
     Indication: VAGINAL DRYNESS
     Dosage: UNK
     Route: 067
     Dates: start: 201212
  2. NEXIUM [Concomitant]
     Indication: ACID REFLUX (ESOPHAGEAL)
     Dosage: UNK
  3. ZOCOR [Concomitant]
     Indication: HIGH CHOLESTEROL
     Dosage: 20 mg, UNK

REACTIONS (1)
  - Vulvovaginal mycotic infection [Not Recovered/Not Resolved]
